FAERS Safety Report 24834090 (Version 2)
Quarter: 2025Q1

REPORT INFORMATION
  Report Type: Report from Study
  Country: US (occurrence: US)
  Receive Date: 20250113
  Receipt Date: 20250219
  Transmission Date: 20250409
  Serious: Yes (Hospitalization, Other)
  Sender: ACADIA PHARMACEUTICALS
  Company Number: US-ACADIA PHARMACEUTICALS INC.-ACA-2025-TRF-000271

PATIENT
  Sex: Female

DRUGS (1)
  1. DAYBUE [Suspect]
     Active Substance: TROFINETIDE
     Indication: Rett syndrome
     Dosage: 40 MILLILITER, BID
     Dates: end: 202411

REACTIONS (5)
  - Cerebrovascular accident [Not Recovered/Not Resolved]
  - Somnolence [Not Recovered/Not Resolved]
  - Vomiting [Not Recovered/Not Resolved]
  - Anxiety [Not Recovered/Not Resolved]
  - Intentional dose omission [Unknown]
